FAERS Safety Report 9156409 (Version 1)
Quarter: 2013Q1

REPORT INFORMATION
  Report Type: Spontaneous
  Country: GB (occurrence: None)
  Receive Date: 20130204
  Receipt Date: 20130204
  Transmission Date: 20140127
  Serious: Yes (Other)
  Sender: FDA-Public Use
  Company Number: 2013-00136

PATIENT
  Sex: Male

DRUGS (4)
  1. LOSARTAN (UNKNOWN) (LOSARTAN) [Suspect]
     Indication: AORTIC ANEURYSM
  2. ACETYLSALICYLIC ACID [Suspect]
     Indication: PRODUCT USED FOR UNKNOWN INDICATION
  3. BENDROFLUAZIDE [Suspect]
     Indication: PRODUCT USED FOR UNKNOWN INDICATION
  4. BISOPROLOL (UNKNOWN) [Suspect]
     Indication: HEART RATE IRREGULAR

REACTIONS (7)
  - Aneurysm [None]
  - Dyspnoea [None]
  - Blood pressure diastolic increased [None]
  - Cardiac failure [None]
  - Transient ischaemic attack [None]
  - Abdominal distension [None]
  - Drug interaction [None]
